FAERS Safety Report 9848146 (Version 1)
Quarter: 2014Q1

REPORT INFORMATION
  Report Type: Spontaneous
  Country: US (occurrence: None)
  Receive Date: 20140123
  Receipt Date: 20140123
  Transmission Date: 20141002
  Serious: Yes (Hospitalization)
  Sender: FDA-Public Use
  Company Number: None

PATIENT
  Age: 64 Year
  Sex: Male
  Weight: 95 kg

DRUGS (1)
  1. DAPTOMYCIN [Suspect]
     Route: 042
     Dates: start: 20130816, end: 20130819

REACTIONS (2)
  - Diabetes mellitus inadequate control [None]
  - Oliguria [None]
